FAERS Safety Report 6414742-X (Version None)
Quarter: 2009Q4

REPORT INFORMATION
  Report Type: 
  Country: None (occurrence: None)
  Receive Date: 20091026
  Receipt Date: 20091026
  Transmission Date: 20100525
  Serious: Yes (Death)
  Sender: FDA-Public Use
  Company Number: None

PATIENT
  Age: 57 Year
  Sex: Male
  Weight: 95 kg

DRUGS (4)
  1. HEPARIN [Suspect]
     Indication: ANTICOAGULANT THERAPY
     Dosage: 3750 IU IV BOLUS
     Route: 040
     Dates: start: 20080920, end: 20080920
  2. HEPARIN [Suspect]
     Indication: MYOCARDIAL INFARCTION
     Dosage: 3750 IU IV BOLUS
     Route: 040
     Dates: start: 20080920, end: 20080920
  3. HEPARIN [Suspect]
     Dosage: 2880 IU IV
     Route: 042
  4. ENOXAPARIN SODIUM [Suspect]

REACTIONS (2)
  - CARDIOGENIC SHOCK [None]
  - MULTI-ORGAN FAILURE [None]
